FAERS Safety Report 15335255 (Version 4)
Quarter: 2019Q4

REPORT INFORMATION
  Report Type: Report from Study
  Country: US (occurrence: US)
  Receive Date: 20180830
  Receipt Date: 20191218
  Transmission Date: 20200122
  Serious: Yes (Other)
  Sender: FDA-Public Use
  Company Number: PHEH2018US035492

PATIENT
  Sex: Female

DRUGS (2)
  1. GILENYA [Suspect]
     Active Substance: FINGOLIMOD HYDROCHLORIDE
     Dosage: 0.5 MG, QD
     Route: 065
     Dates: start: 20180821, end: 201911
  2. GILENYA [Suspect]
     Active Substance: FINGOLIMOD HYDROCHLORIDE
     Indication: MULTIPLE SCLEROSIS
     Dosage: 0.5 MG, QD
     Route: 048
     Dates: start: 201701

REACTIONS (16)
  - Feeling abnormal [Unknown]
  - Swelling face [Unknown]
  - Fear [Unknown]
  - Accidental overdose [Unknown]
  - Visual impairment [Unknown]
  - Balance disorder [Unknown]
  - Headache [Unknown]
  - Hypertension [Unknown]
  - Eye disorder [Unknown]
  - Paraesthesia [Unknown]
  - Gait disturbance [Unknown]
  - Nervousness [Unknown]
  - Cerebrovascular accident [Unknown]
  - Peripheral swelling [Unknown]
  - Tension headache [Unknown]
  - Malaise [Unknown]
